FAERS Safety Report 8240164-5 (Version None)
Quarter: 2012Q1

REPORT INFORMATION
  Report Type: 
  Country: None (occurrence: None)
  Receive Date: 20120328
  Receipt Date: 20120320
  Transmission Date: 20120608
  Serious: Yes (Death)
  Sender: FDA-Public Use
  Company Number: JM-PFIZER INC-2012078276

PATIENT

DRUGS (1)
  1. PANTOPRAZOLE [Suspect]
     Dosage: 40 MG; DAILY DOSE NOT SPECIFIED

REACTIONS (1)
  - DEATH [None]
